FAERS Safety Report 8802213 (Version 3)
Quarter: 2013Q4

REPORT INFORMATION
  Report Type: Spontaneous
  Country: BR (occurrence: BR)
  Receive Date: 20120921
  Receipt Date: 20131014
  Transmission Date: 20140711
  Serious: Yes (Death, Other)
  Sender: FDA-Public Use
  Company Number: BR-SHIRE-ALL1-2012-04454

PATIENT
  Age: 22 Year
  Sex: Male

DRUGS (1)
  1. ELAPRASE [Suspect]
     Indication: MUCOPOLYSACCHARIDOSIS II
     Dosage: UNK, UNKNOWN
     Route: 041
     Dates: start: 200803

REACTIONS (4)
  - Pneumonia [Fatal]
  - Asthmatic crisis [Fatal]
  - Cardiac arrest [Fatal]
  - Respiratory arrest [Fatal]
